FAERS Safety Report 17479136 (Version 1)
Quarter: 2020Q1

REPORT INFORMATION
  Report Type: Report from Study
  Country: CA (occurrence: CA)
  Receive Date: 20200228
  Receipt Date: 20200228
  Transmission Date: 20200409
  Serious: Yes (Other)
  Sender: FDA-Public Use
  Company Number: CA-JNJFOC-20191130137

PATIENT
  Age: 73 Year
  Sex: Female
  Weight: 77.6 kg

DRUGS (1)
  1. SIMPONI [Suspect]
     Active Substance: GOLIMUMAB
     Indication: ANKYLOSING SPONDYLITIS
     Route: 058
     Dates: start: 20190930

REACTIONS (6)
  - Fatigue [Not Recovered/Not Resolved]
  - Viral infection [Unknown]
  - Bronchitis [Recovering/Resolving]
  - Lymphadenopathy [Recovering/Resolving]
  - Cellulitis [Recovering/Resolving]
  - Drug ineffective [Unknown]

NARRATIVE: CASE EVENT DATE: 20191112
